FAERS Safety Report 7006324-6 (Version None)
Quarter: 2010Q3

REPORT INFORMATION
  Report Type: 
  Country: None (occurrence: None)
  Receive Date: 20100921
  Receipt Date: 20100911
  Transmission Date: 20110219
  Serious: Yes (Other)
  Sender: FDA-Public Use
  Company Number: US-PURDUE-USA-2010-0046829

PATIENT
  Sex: Male

DRUGS (3)
  1. OXYCONTIN [Suspect]
     Indication: BONE PAIN
     Dosage: 40 MG, TID
  2. OXYCONTIN [Suspect]
     Dosage: 40 MG, BID
  3. OXYCODONE HCL [Suspect]
     Indication: PRODUCT USED FOR UNKNOWN INDICATION
     Dosage: 5 MG, UNK

REACTIONS (2)
  - EXOSTOSIS [None]
  - KNEE ARTHROPLASTY [None]
